FAERS Safety Report 25209802 (Version 1)
Quarter: 2025Q2

REPORT INFORMATION
  Report Type: Spontaneous
  Country: US (occurrence: US)
  Receive Date: 20250417
  Receipt Date: 20250417
  Transmission Date: 20250716
  Serious: No
  Sender: BIOGEN
  Company Number: US-BIOGEN-2023BI01232018

PATIENT
  Sex: Female

DRUGS (12)
  1. AVONEX [Suspect]
     Active Substance: INTERFERON BETA-1A
     Indication: Multiple sclerosis
     Dosage: INJECT 1 PEN INTRAMUSCULARLY ONCE WEEKLY
     Route: 050
     Dates: start: 20180907
  2. AVONEX [Suspect]
     Active Substance: INTERFERON BETA-1A
  3. AVONEX [Suspect]
     Active Substance: INTERFERON BETA-1A
  4. AVONEX [Suspect]
     Active Substance: INTERFERON BETA-1A
  5. AVONEX [Suspect]
     Active Substance: INTERFERON BETA-1A
     Indication: Multiple sclerosis
     Route: 050
     Dates: start: 20060526, end: 20170117
  6. AVONEX [Suspect]
     Active Substance: INTERFERON BETA-1A
  7. AVONEX [Suspect]
     Active Substance: INTERFERON BETA-1A
  8. AVONEX [Suspect]
     Active Substance: INTERFERON BETA-1A
  9. ROPINIROLE HYDROCHLORIDE [Concomitant]
     Active Substance: ROPINIROLE HYDROCHLORIDE
     Route: 050
  10. PROPRANOLOL HYDROCHLORIDE [Concomitant]
     Active Substance: PROPRANOLOL HYDROCHLORIDE
     Route: 050
  11. ALEVE [Concomitant]
     Active Substance: NAPROXEN SODIUM
     Route: 050
  12. TUMS E-X 750 [Concomitant]
     Route: 050

REACTIONS (17)
  - Product dose omission in error [Unknown]
  - Multiple sclerosis [Unknown]
  - Limb injury [Unknown]
  - Motor dysfunction [Unknown]
  - Palpitations [Unknown]
  - Contusion [Unknown]
  - Swelling [Unknown]
  - Tenderness [Unknown]
  - Musculoskeletal disorder [Unknown]
  - Cognitive disorder [Unknown]
  - Stress [Unknown]
  - Speech disorder [Unknown]
  - Peroneal nerve palsy [Unknown]
  - Essential tremor [Unknown]
  - Dizziness [Unknown]
  - Gait disturbance [Unknown]
  - Fatigue [Unknown]
